FAERS Safety Report 5277203-X (Version None)
Quarter: 2007Q1

REPORT INFORMATION
  Report Type: 
  Country: None (occurrence: None)
  Receive Date: 20070322
  Receipt Date: 20070322
  Transmission Date: 20070707
  Serious: Yes (Other)
  Sender: FDA-Public Use
  Company Number: None

PATIENT
  Age: 49 Year
  Sex: Female

DRUGS (1)
  1. TINCTURE OF BENZOIN COMPOUND MFR: DENISON PHARMACEUTICALS [Suspect]
     Dosage: TOPICALLY
     Route: 061
     Dates: start: 20070316

REACTIONS (6)
  - ACCIDENTAL EXPOSURE [None]
  - BLISTER [None]
  - DERMATITIS CONTACT [None]
  - PARAESTHESIA [None]
  - PHARMACEUTICAL PRODUCT COMPLAINT [None]
  - SKIN DISCOLOURATION [None]
